FAERS Safety Report 13451158 (Version 2)
Quarter: 2017Q2

REPORT INFORMATION
  Report Type: Spontaneous
  Country: US (occurrence: US)
  Receive Date: 20170418
  Receipt Date: 20170517
  Transmission Date: 20170830
  Serious: Yes (Death, Other)
  Sender: FDA-Public Use
  Company Number: US-JNJFOC-20170417682

PATIENT
  Age: 89 Year
  Sex: Male
  Weight: 67.13 kg

DRUGS (22)
  1. ZYTIGA [Suspect]
     Active Substance: ABIRATERONE ACETATE
     Indication: PRODUCT USED FOR UNKNOWN INDICATION
     Route: 048
     Dates: start: 20161107
  2. LASIX [Concomitant]
     Active Substance: FUROSEMIDE
     Route: 048
  3. WESTCORT [Concomitant]
     Active Substance: HYDROCORTISONE VALERATE
     Route: 065
  4. MAG-OX [Concomitant]
     Active Substance: MAGNESIUM OXIDE
     Route: 048
  5. CYANOCOBALAMINE [Concomitant]
     Active Substance: CYANOCOBALAMIN
     Route: 048
  6. COREG [Concomitant]
     Active Substance: CARVEDILOL
     Route: 048
  7. OCUVITE [Concomitant]
     Active Substance: VITAMINS
     Route: 048
  8. ZEAXANTHIN [Concomitant]
     Active Substance: ZEAXANTHIN
     Route: 048
  9. LIPITOR [Concomitant]
     Active Substance: ATORVASTATIN CALCIUM
     Route: 048
  10. XGEVA [Concomitant]
     Active Substance: DENOSUMAB
     Route: 058
  11. ASPIRIN. [Suspect]
     Active Substance: ASPIRIN
     Indication: ANTICOAGULANT THERAPY
     Route: 048
  12. DELTA-CORTISONE [Concomitant]
     Route: 048
  13. XTANDI [Concomitant]
     Active Substance: ENZALUTAMIDE
     Route: 048
  14. SENNA [Concomitant]
     Active Substance: SENNA LEAF\SENNOSIDES\SENNOSIDES A AND B
     Route: 048
  15. ZYTIGA [Suspect]
     Active Substance: ABIRATERONE ACETATE
     Indication: PRODUCT USED FOR UNKNOWN INDICATION
     Route: 048
     Dates: start: 20170313, end: 20170327
  16. KENALOG [Concomitant]
     Active Substance: TRIAMCINOLONE ACETONIDE
     Route: 065
  17. VITAMIN D3 [Concomitant]
     Active Substance: CHOLECALCIFEROL
     Route: 048
  18. ROXICODONE [Concomitant]
     Active Substance: OXYCODONE HYDROCHLORIDE
     Route: 048
  19. COUMADIN [Suspect]
     Active Substance: WARFARIN SODIUM
     Indication: ANTICOAGULANT THERAPY
     Route: 065
  20. OSCAL [Concomitant]
     Active Substance: CALCIUM CARBONATE
     Route: 048
  21. CHLORHEXIDINE [Concomitant]
     Active Substance: CHLORHEXIDINE
     Route: 048
  22. LOVENOX [Suspect]
     Active Substance: ENOXAPARIN SODIUM
     Indication: ANTICOAGULANT THERAPY
     Route: 058

REACTIONS (6)
  - Anticoagulation drug level above therapeutic [Fatal]
  - Tongue neoplasm malignant stage unspecified [Fatal]
  - Haematoma [Not Recovered/Not Resolved]
  - Dysphagia [Unknown]
  - Wrong technique in product usage process [Unknown]
  - Lymphadenopathy mediastinal [Fatal]

NARRATIVE: CASE EVENT DATE: 20170320
